FAERS Safety Report 13333436 (Version 1)
Quarter: 2017Q1

REPORT INFORMATION
  Report Type: Spontaneous
  Country: JP (occurrence: JP)
  Receive Date: 20170313
  Receipt Date: 20170313
  Transmission Date: 20170428
  Serious: Yes (Hospitalization)
  Sender: FDA-Public Use
  Company Number: JP-ABBVIE-16P-087-1784201-00

PATIENT
  Age: 71 Year
  Sex: Male

DRUGS (11)
  1. POLAPREZINC [Concomitant]
     Active Substance: POLAPREZINC
     Indication: PRODUCT USED FOR UNKNOWN INDICATION
  2. VIEKIRAX [Suspect]
     Active Substance: OMBITASVIR\PARITAPREVIR\RITONAVIR
     Indication: CHRONIC HEPATITIS C
     Route: 048
  3. VOGLIBOSE [Concomitant]
     Active Substance: VOGLIBOSE
     Indication: PRODUCT USED FOR UNKNOWN INDICATION
  4. EPALRESTAT [Concomitant]
     Active Substance: EPALRESTAT
     Indication: PRODUCT USED FOR UNKNOWN INDICATION
  5. MECOBALAMIN [Concomitant]
     Active Substance: METHYLCOBALAMIN
     Indication: PRODUCT USED FOR UNKNOWN INDICATION
  6. VALSARTAN. [Concomitant]
     Active Substance: VALSARTAN
     Indication: PRODUCT USED FOR UNKNOWN INDICATION
  7. CALCIUM CARBONATE. [Concomitant]
     Active Substance: CALCIUM CARBONATE
     Indication: PRODUCT USED FOR UNKNOWN INDICATION
  8. VILDAGLIPTIN [Concomitant]
     Active Substance: VILDAGLIPTIN
     Indication: PRODUCT USED FOR UNKNOWN INDICATION
  9. RABEPRAZOLE [Concomitant]
     Active Substance: RABEPRAZOLE
     Indication: PRODUCT USED FOR UNKNOWN INDICATION
  10. LANTHANUM CARBONATE. [Concomitant]
     Active Substance: LANTHANUM CARBONATE
     Indication: PRODUCT USED FOR UNKNOWN INDICATION
  11. WARFARIN [Concomitant]
     Active Substance: WARFARIN
     Indication: PRODUCT USED FOR UNKNOWN INDICATION

REACTIONS (4)
  - Fall [Unknown]
  - Gait disturbance [Unknown]
  - Pruritus [Unknown]
  - Delirium [Recovered/Resolved]
